FAERS Safety Report 23788648 (Version 1)
Quarter: 2024Q2

REPORT INFORMATION
  Report Type: Spontaneous
  Country: US (occurrence: None)
  Receive Date: 20240425
  Receipt Date: 20240425
  Transmission Date: 20240716
  Serious: No
  Sender: FDA-Public Use
  Company Number: None

PATIENT
  Age: 73 Year
  Sex: Male
  Weight: 70.31 kg

DRUGS (17)
  1. LEVOFLOXACIN [Suspect]
     Active Substance: LEVOFLOXACIN
     Indication: Acute myeloid leukaemia
     Dosage: FREQUENCY : DAILY;?
     Dates: end: 20240330
  2. ACETAMINOPHEN-HYDROCODONE [Concomitant]
  3. ALBUTEROL-IPRATROPIUM [Concomitant]
  4. ATORVASTATIN [Concomitant]
  5. BISACODYL [Concomitant]
     Active Substance: BISACODYL
  6. CYANOCOBALAMIN [Concomitant]
  7. DOCUSATE-SENNA [Concomitant]
  8. ENOXAPARIN [Concomitant]
  9. GLUCAGON [Concomitant]
  10. GLUCOSE [Concomitant]
  11. HYDRALAZINE [Concomitant]
  12. INSULIN GLARGINE [Concomitant]
  13. INSULIN LISPRO [Concomitant]
  14. LEVOTHYROXINE [Concomitant]
  15. LORAZEPAM [Concomitant]
  16. METFORMIN [Concomitant]
  17. NIACIN [Concomitant]

REACTIONS (8)
  - Dizziness [None]
  - Dizziness [None]
  - Insomnia [None]
  - Tendonitis [None]
  - Rhabdomyolysis [None]
  - Tinnitus [None]
  - Rash [None]
  - Fall [None]

NARRATIVE: CASE EVENT DATE: 20230330
